FAERS Safety Report 6077755-6 (Version None)
Quarter: 2009Q1

REPORT INFORMATION
  Report Type: 
  Country: None (occurrence: None)
  Receive Date: 20090213
  Receipt Date: 20090204
  Transmission Date: 20090719
  Serious: Yes (Hospitalization, Disabling, Other)
  Sender: FDA-Public Use
  Company Number: GB-PFIZER INC-2009161071

PATIENT

DRUGS (10)
  1. GENOTROPIN [Suspect]
     Indication: GROWTH HORMONE DEFICIENCY
     Dosage: 1.3 MG, 1X/DAY
     Route: 058
     Dates: start: 20080301
  2. SODIUM BICARBONATE [Concomitant]
     Dosage: 8.4 %, 4X/DAY
     Route: 048
  3. ALLOPURINOL [Concomitant]
     Dosage: 200 MG, 2X/DAY
     Route: 048
  4. METRONIDAZOLE [Concomitant]
     Dosage: 200 MG, 2X/DAY
     Route: 048
  5. CARNITOR [Concomitant]
     Dosage: 3.5 ML, 2X/DAY
     Route: 048
  6. PEDIASURE [Concomitant]
     Dosage: 455 ML, 1X/DAY
     Route: 048
  7. CALOGEN [Concomitant]
     Dosage: 130 ML, 1X/DAY
     Route: 048
  8. POTASSIUM [Concomitant]
     Dosage: 10 ML, 1X/DAY
     Route: 048
  9. MAXIJUL [Concomitant]
     Dosage: 180 G, 1X/DAY
     Route: 048
  10. FERROUS SULFATE [Concomitant]
     Dosage: 200 MG, 1X/DAY
     Route: 048

REACTIONS (2)
  - BLINDNESS [None]
  - OPTIC ATROPHY [None]
